FAERS Safety Report 8806770 (Version 1)
Quarter: 2012Q4

REPORT INFORMATION
  Report Type: Report from Study
  Country: US (occurrence: US)
  Receive Date: 20120925
  Receipt Date: 20120925
  Transmission Date: 20130627
  Serious: Yes (Other)
  Sender: FDA-Public Use
  Company Number: US-ABBOTT-12P-163-0980688-00

PATIENT
  Sex: Male
  Weight: 94.89 kg

DRUGS (12)
  1. HUMIRA [Suspect]
     Indication: PRODUCT USED FOR UNKNOWN INDICATION
  2. MULTIVITAMIN [Concomitant]
     Indication: VITAMIN SUPPLEMENTATION
  3. PANTOPRAZOLE [Concomitant]
     Indication: GASTROOESOPHAGEAL REFLUX DISEASE
  4. FOLIC ACID [Concomitant]
     Indication: VITAMIN SUPPLEMENTATION
  5. PREDNISONE [Concomitant]
     Indication: PRODUCT USED FOR UNKNOWN INDICATION
  6. LEVOTHYROXINE [Concomitant]
     Indication: THYROID DISORDER
  7. METHOTREXATE [Concomitant]
     Indication: RHEUMATOID ARTHRITIS
  8. BUSPIRONE [Concomitant]
     Indication: MENTAL DISORDER
  9. KLONOPIN [Concomitant]
     Indication: MENTAL DISORDER
  10. KLONOPIN [Concomitant]
     Indication: ANXIETY
  11. DOXEPIN [Concomitant]
     Indication: INSOMNIA
  12. ESCITALOPRAM [Concomitant]
     Indication: MENTAL DISORDER

REACTIONS (7)
  - Ligament rupture [Not Recovered/Not Resolved]
  - Arthralgia [Not Recovered/Not Resolved]
  - Arthropathy [Not Recovered/Not Resolved]
  - Arthropathy [Not Recovered/Not Resolved]
  - Pain [Not Recovered/Not Resolved]
  - Joint stiffness [Recovered/Resolved]
  - Rheumatoid arthritis [Recovered/Resolved]
